FAERS Safety Report 16591722 (Version 1)
Quarter: 2019Q3

REPORT INFORMATION
  Report Type: Spontaneous
  Country: CN (occurrence: CN)
  Receive Date: 20190718
  Receipt Date: 20190718
  Transmission Date: 20191004
  Serious: Yes (Hospitalization)
  Sender: FDA-Public Use
  Company Number: CN-PFIZER INC-2019301195

PATIENT
  Age: 59 Year
  Sex: Female

DRUGS (1)
  1. PHARMORUBICIN [Suspect]
     Active Substance: EPIRUBICIN
     Dosage: 135 MG, 1X/DAY
     Route: 041
     Dates: start: 20190615, end: 20190615

REACTIONS (1)
  - Bone marrow failure [Recovering/Resolving]

NARRATIVE: CASE EVENT DATE: 20190621
